FAERS Safety Report 9314164 (Version 1)
Quarter: 2013Q2

REPORT INFORMATION
  Report Type: Spontaneous
  Country: FR (occurrence: FR)
  Receive Date: 20130529
  Receipt Date: 20130529
  Transmission Date: 20140414
  Serious: Yes (Hospitalization)
  Sender: FDA-Public Use
  Company Number: FR-ACCORD-017792

PATIENT
  Age: 52 Year
  Sex: Male
  Weight: 105 kg

DRUGS (3)
  1. MYCOPHENOLATE MOFETIL [Suspect]
     Indication: PEMPHIGOID
  2. CLOBETASOL PROPIONATE [Suspect]
     Indication: PEMPHIGOID
     Dosage: 0.05 %
     Route: 061
  3. PREDNISOLONE [Suspect]
     Indication: PEMPHIGOID

REACTIONS (2)
  - Necrotising fasciitis [Recovered/Resolved with Sequelae]
  - Off label use [Unknown]
